FAERS Safety Report 6313889-6 (Version None)
Quarter: 2009Q3

REPORT INFORMATION
  Report Type: 
  Country: None (occurrence: None)
  Receive Date: 20090817
  Receipt Date: 20090817
  Transmission Date: 20100115
  Serious: Yes (Other)
  Sender: FDA-Public Use
  Company Number: None

PATIENT
  Age: 35 Year
  Sex: Female
  Weight: 82.5547 kg

DRUGS (1)
  1. YAZ [Suspect]
     Indication: ENDOMETRIOSIS
     Dosage: ONCE DAILY PO
     Route: 048
     Dates: start: 20080602, end: 20090712

REACTIONS (4)
  - DEPRESSION [None]
  - HOT FLUSH [None]
  - MOOD SWINGS [None]
  - SUICIDAL IDEATION [None]
